FAERS Safety Report 5592200-2 (Version None)
Quarter: 2008Q1

REPORT INFORMATION
  Report Type: 
  Country: None (occurrence: None)
  Receive Date: 20080115
  Receipt Date: 20071210
  Transmission Date: 20080703
  Serious: No
  Sender: FDA-Public Use
  Company Number: US-ABBOTT-07P-163-0430149-00

PATIENT
  Sex: Male
  Weight: 69.008 kg

DRUGS (3)
  1. ADVICOR [Suspect]
     Indication: BLOOD CHOLESTEROL INCREASED
     Route: 048
     Dates: start: 20060101, end: 20070701
  2. ADVICOR [Suspect]
     Route: 048
     Dates: start: 20071210
  3. ASPIRIN [Concomitant]
     Indication: DRUG USE FOR UNKNOWN INDICATION

REACTIONS (3)
  - DIARRHOEA [None]
  - HIGH DENSITY LIPOPROTEIN DECREASED [None]
  - WEIGHT DECREASED [None]
